FAERS Safety Report 10167506 (Version 5)
Quarter: 2014Q3

REPORT INFORMATION
  Report Type: Spontaneous
  Country: US (occurrence: US)
  Receive Date: 20140512
  Receipt Date: 20140701
  Transmission Date: 20150326
  Serious: Yes (Other)
  Sender: FDA-Public Use
  Company Number: US-PFIZER INC-2014127940

PATIENT
  Age: 69 Year
  Sex: Female
  Weight: 63.49 kg

DRUGS (7)
  1. EFFEXOR XR [Suspect]
     Active Substance: VENLAFAXINE HYDROCHLORIDE
     Indication: MAJOR DEPRESSION
     Dosage: 75 MG, 1X/DAY
     Route: 048
     Dates: start: 20140224, end: 2014
  2. VENLAFAXINE [Suspect]
     Active Substance: VENLAFAXINE HYDROCHLORIDE
     Dosage: 37.5 MG, UNK
     Dates: end: 201405
  3. LEXAPRO [Concomitant]
     Active Substance: ESCITALOPRAM OXALATE
     Indication: MAJOR DEPRESSION
     Dosage: 10 MG, UNK
  4. CARISOPRODOL. [Concomitant]
     Active Substance: CARISOPRODOL
     Indication: DYSTONIA
     Dosage: UNK
  5. EFFEXOR XR [Suspect]
     Active Substance: VENLAFAXINE HYDROCHLORIDE
     Dosage: 37.5 MG, UNK
     Route: 048
     Dates: start: 2014, end: 20140516
  6. VENLAFAXINE [Suspect]
     Active Substance: VENLAFAXINE HYDROCHLORIDE
     Indication: MAJOR DEPRESSION
     Dosage: 75 MG, UNK
  7. VALIUM [Concomitant]
     Active Substance: DIAZEPAM
     Indication: NEUROPATHIC ARTHROPATHY
     Dosage: 10 MG, 1X/DAY

REACTIONS (28)
  - Muscle rupture [Recovering/Resolving]
  - Dyskinesia [Recovering/Resolving]
  - Drug intolerance [Unknown]
  - Feeling abnormal [Recovering/Resolving]
  - Gait disturbance [Not Recovered/Not Resolved]
  - Drug ineffective [Unknown]
  - Muscle twitching [Recovering/Resolving]
  - Disturbance in attention [Recovering/Resolving]
  - Muscle spasms [Recovering/Resolving]
  - Musculoskeletal stiffness [Recovering/Resolving]
  - Headache [Unknown]
  - Personality change [Unknown]
  - Vision blurred [Recovering/Resolving]
  - Paraesthesia [Unknown]
  - Abnormal dreams [Unknown]
  - Convulsion [Recovering/Resolving]
  - Memory impairment [Unknown]
  - Myalgia [Recovering/Resolving]
  - Nervous system disorder [Recovering/Resolving]
  - Drug withdrawal syndrome [Recovering/Resolving]
  - Weight decreased [Recovering/Resolving]
  - Impaired driving ability [Recovering/Resolving]
  - Diplopia [Recovering/Resolving]
  - Dysarthria [Unknown]
  - Confusional state [Not Recovered/Not Resolved]
  - Muscle disorder [Recovering/Resolving]
  - Visual impairment [Recovering/Resolving]
  - Pain [Recovering/Resolving]

NARRATIVE: CASE EVENT DATE: 201402
